FAERS Safety Report 22044898 (Version 1)
Quarter: 2023Q1

REPORT INFORMATION
  Report Type: Spontaneous
  Country: US (occurrence: None)
  Receive Date: 20230227
  Receipt Date: 20230227
  Transmission Date: 20230418
  Serious: Yes (Other)
  Sender: FDA-Public Use
  Company Number: None

PATIENT
  Age: 49 Year
  Sex: Female
  Weight: 81 kg

DRUGS (4)
  1. CONTRAVE [Suspect]
     Active Substance: BUPROPION HYDROCHLORIDE\NALTREXONE HYDROCHLORIDE
     Indication: Obesity
     Route: 048
     Dates: start: 20230223, end: 20230225
  2. TIROSINT [Concomitant]
     Active Substance: LEVOTHYROXINE SODIUM
  3. WELLBUTRIN XL [Concomitant]
  4. ZOLOFT [Concomitant]

REACTIONS (8)
  - Dizziness [None]
  - Headache [None]
  - Nausea [None]
  - Fatigue [None]
  - Job dissatisfaction [None]
  - Chest discomfort [None]
  - Loss of consciousness [None]
  - Therapy cessation [None]

NARRATIVE: CASE EVENT DATE: 20230225
